FAERS Safety Report 8066473-0 (Version None)
Quarter: 2012Q1

REPORT INFORMATION
  Report Type: 
  Country: None (occurrence: None)
  Receive Date: 20120124
  Receipt Date: 20120120
  Transmission Date: 20120608
  Serious: Yes (Other)
  Sender: FDA-Public Use
  Company Number: US-BAYER-2012-006575

PATIENT
  Age: 38 Year
  Sex: Male

DRUGS (2)
  1. NAPROXEN (ALEVE) [Concomitant]
     Dosage: 2 TABLETS HS
  2. BETASERON [Suspect]
     Indication: MULTIPLE SCLEROSIS
     Dosage: 8 MIU, QOD
     Route: 058
     Dates: start: 20020425

REACTIONS (1)
  - HAEMATOCHEZIA [None]
